FAERS Safety Report 6263360-5 (Version None)
Quarter: 2009Q3

REPORT INFORMATION
  Report Type: 
  Country: None (occurrence: None)
  Receive Date: 20090710
  Receipt Date: 20080718
  Transmission Date: 20100115
  Serious: No
  Sender: FDA-Public Use
  Company Number: A0738659A

PATIENT
  Age: 83 Year
  Sex: Female

DRUGS (10)
  1. FLOVENT [Suspect]
     Indication: ASTHMA
     Route: 055
     Dates: start: 20071201
  2. LIPITOR [Concomitant]
  3. METOPROLOL [Concomitant]
  4. FOSAMAX [Concomitant]
  5. CALCIUM PLUS D [Concomitant]
  6. BIAXIN [Concomitant]
  7. CENTRUM SILVER [Concomitant]
  8. VIT C [Concomitant]
  9. VIT E [Concomitant]
  10. FLEXERIL [Concomitant]

REACTIONS (1)
  - APHONIA [None]
